FAERS Safety Report 6170381-X (Version None)
Quarter: 2009Q2

REPORT INFORMATION
  Report Type: 
  Country: None (occurrence: None)
  Receive Date: 20090427
  Receipt Date: 20090427
  Transmission Date: 20091009
  Serious: Yes (Other)
  Sender: FDA-Public Use
  Company Number: None

PATIENT
  Sex: Male
  Weight: 84.8 kg

DRUGS (16)
  1. MILRINONE [Suspect]
     Indication: CARDIAC FAILURE ACUTE
     Dosage: 0.125-0.25 MCG/KG/MIN
     Dates: start: 20090119, end: 20090122
  2. ASPIRIN [Concomitant]
  3. VANCOMYCIN HCL [Concomitant]
  4. APAP TAB [Concomitant]
  5. MAALOX [Concomitant]
  6. MAGNESIUM SULFATE [Concomitant]
  7. MEPERIDINE HCL [Concomitant]
  8. MORPHINE [Concomitant]
  9. PERCOCET [Concomitant]
  10. CEFAZOIN [Concomitant]
  11. ASPART [Concomitant]
  12. LASIX [Concomitant]
  13. DOCUSATE [Concomitant]
  14. MILK OF MAG [Concomitant]
  15. LACTUOSE [Concomitant]
  16. PREVACID [Concomitant]

REACTIONS (1)
  - PLATELET COUNT DECREASED [None]
